FAERS Safety Report 24601709 (Version 4)
Quarter: 2025Q4

REPORT INFORMATION
  Report Type: Spontaneous
  Country: US (occurrence: US)
  Receive Date: 20241111
  Receipt Date: 20251030
  Transmission Date: 20260118
  Serious: No
  Sender: ROCHE
  Company Number: US-ROCHE-10000128098

PATIENT
  Age: 41 Year
  Sex: Female

DRUGS (6)
  1. XOLAIR [Suspect]
     Active Substance: OMALIZUMAB
     Indication: Product used for unknown indication
     Route: 058
  2. XOLAIR [Suspect]
     Active Substance: OMALIZUMAB
  3. MAGNESIUM [Concomitant]
     Active Substance: MAGNESIUM
  4. CLARITIN [Concomitant]
     Active Substance: LORATADINE
  5. ALBUTAMOL [Concomitant]
  6. VITAMINS [Concomitant]
     Active Substance: VITAMINS

REACTIONS (1)
  - Maternal exposure before pregnancy [Unknown]
